FAERS Safety Report 12882578 (Version 2)
Quarter: 2019Q2

REPORT INFORMATION
  Report Type: Spontaneous
  Country: US (occurrence: US)
  Receive Date: 20161025
  Receipt Date: 20190529
  Transmission Date: 20190711
  Serious: No
  Sender: FDA-Public Use
  Company Number: US-PFIZER INC-2016491482

PATIENT
  Sex: Male

DRUGS (1)
  1. PROTONIX [Suspect]
     Active Substance: PANTOPRAZOLE SODIUM
     Dosage: 40 MG, 1X/DAY (HAD BEEN TAKING IT CONTINUOUSLY FOR LAST 5 YEARS)

REACTIONS (3)
  - Condition aggravated [Unknown]
  - Gastrooesophageal reflux disease [Unknown]
  - Intentional product use issue [Unknown]
